FAERS Safety Report 18343581 (Version 1)
Quarter: 2020Q4

REPORT INFORMATION
  Report Type: Spontaneous
  Country: US (occurrence: US)
  Receive Date: 20201005
  Receipt Date: 20201005
  Transmission Date: 20210113
  Serious: No
  Sender: FDA-Public Use
  Company Number: US-BRISTOL-MYERS SQUIBB COMPANY-BMS-2020-078829

PATIENT
  Sex: Female

DRUGS (3)
  1. BIOFREEZE [CAMPHOR;ISOPROPANOL;MENTHOL] [Concomitant]
     Indication: PAIN
     Route: 065
  2. TURMERIC [CURCUMA LONGA RHIZOME] [Concomitant]
     Active Substance: HERBALS\TURMERIC
     Indication: PRODUCT USED FOR UNKNOWN INDICATION
     Route: 065
  3. ELIQUIS [Suspect]
     Active Substance: APIXABAN
     Indication: CEREBROVASCULAR ACCIDENT PROPHYLAXIS
     Dosage: 5 MILLIGRAM, TWO TIMES A DAY, FOR 8 MONTHS
     Route: 048

REACTIONS (5)
  - Exercise tolerance decreased [Unknown]
  - Decreased appetite [Unknown]
  - Dyspnoea exertional [Unknown]
  - Weight increased [Unknown]
  - Feeling abnormal [Unknown]
